FAERS Safety Report 6372792-6 (Version None)
Quarter: 2009Q3

REPORT INFORMATION
  Report Type: 
  Country: None (occurrence: None)
  Receive Date: 20090924
  Receipt Date: 20081208
  Transmission Date: 20100115
  Serious: No
  Sender: FDA-Public Use
  Company Number: US-ASTRAZENECA-2008UW25165

PATIENT

DRUGS (2)
  1. SEROQUEL [Suspect]
     Dosage: 200 MG
     Route: 048
  2. CYMBALTA [Concomitant]

REACTIONS (1)
  - SENSORY DISTURBANCE [None]
